FAERS Safety Report 10035569 (Version 2)
Quarter: 2017Q4

REPORT INFORMATION
  Report Type: Spontaneous
  Country: US (occurrence: US)
  Receive Date: 20140325
  Receipt Date: 20171218
  Transmission Date: 20180320
  Serious: Yes (Hospitalization, Disabling, Other)
  Sender: FDA-Public Use
  Company Number: US-009507513-1403USA010978

PATIENT
  Sex: Female
  Weight: 68.03 kg

DRUGS (4)
  1. FOSAMAX [Suspect]
     Active Substance: ALENDRONATE SODIUM
     Indication: OSTEOPOROSIS
     Dosage: 70 MG, UNK
     Route: 048
     Dates: start: 200501, end: 2007
  2. FOSAMAX [Suspect]
     Active Substance: ALENDRONATE SODIUM
     Dosage: 70 MG, UNK
     Route: 048
     Dates: start: 20091219
  3. FOSAMAX [Suspect]
     Active Substance: ALENDRONATE SODIUM
     Indication: OSTEOPOROSIS
     Dosage: 35 MG, UNK
     Route: 065
     Dates: end: 20090512
  4. ALENDRONATE SODIUM. [Suspect]
     Active Substance: ALENDRONATE SODIUM
     Dosage: 70 MG, UNK
     Dates: start: 20080215, end: 2008

REACTIONS (11)
  - Musculoskeletal pain [Unknown]
  - Femur fracture [Recovered/Resolved]
  - Fall [Unknown]
  - Gastrooesophageal reflux disease [Unknown]
  - Pain [Unknown]
  - Atrial fibrillation [Recovered/Resolved]
  - Device failure [Unknown]
  - Sinus tachycardia [Recovered/Resolved]
  - Hypertension [Unknown]
  - Dyslipidaemia [Unknown]
  - Back pain [Unknown]

NARRATIVE: CASE EVENT DATE: 20090106
